APPROVED DRUG PRODUCT: AVGEMSI
Active Ingredient: GEMCITABINE HYDROCHLORIDE
Strength: EQ 2GM BASE/52.6ML (EQ 38MG BASE/ML)
Dosage Form/Route: SOLUTION;INTRAVENOUS
Application: N219920 | Product #003
Applicant: AVYXA HOLDINGS LLC
Approved: Jun 27, 2025 | RLD: Yes | RS: Yes | Type: RX